FAERS Safety Report 13480819 (Version 3)
Quarter: 2017Q3

REPORT INFORMATION
  Report Type: Spontaneous
  Country: US (occurrence: US)
  Receive Date: 20170425
  Receipt Date: 20170926
  Transmission Date: 20171127
  Serious: No
  Sender: FDA-Public Use
  Company Number: US-ACTELION-A-US2017-152954

PATIENT
  Age: 55 Year
  Sex: Male

DRUGS (10)
  1. POTASSIUM [Concomitant]
     Active Substance: POTASSIUM
     Dosage: 325 MG, QD
     Dates: start: 2015
  2. FUROSEMIDE. [Concomitant]
     Active Substance: FUROSEMIDE
     Dosage: 40 MG, BID
     Dates: start: 2015
  3. CARVEDILOL. [Concomitant]
     Active Substance: CARVEDILOL
     Dosage: 12.5 MG, BID
     Dates: start: 2015
  4. OPSUMIT [Suspect]
     Active Substance: MACITENTAN
     Indication: PULMONARY ARTERIAL HYPERTENSION
     Dosage: 10 MG, QD
     Route: 048
     Dates: start: 20170411, end: 20170415
  5. HUMALOG [Concomitant]
     Active Substance: INSULIN LISPRO
     Dosage: SLIDING SCALE, TID
     Dates: start: 2013
  6. SPIRONOLACTONE. [Concomitant]
     Active Substance: SPIRONOLACTONE
     Dosage: 25 MG, TID
     Dates: start: 2016
  7. LANTUS [Concomitant]
     Active Substance: INSULIN GLARGINE
     Dosage: 30 U, BID
  8. ADCIRCA [Concomitant]
     Active Substance: TADALAFIL
     Dosage: 20 MG, BID
     Dates: start: 2015
  9. METFORMIN [Concomitant]
     Active Substance: METFORMIN HYDROCHLORIDE
     Dosage: 2000 MG, BID
  10. HYDRALAZINE [Concomitant]
     Active Substance: HYDRALAZINE HYDROCHLORIDE
     Dosage: 25 MG, TID
     Dates: start: 2016

REACTIONS (7)
  - Haematochezia [Not Recovered/Not Resolved]
  - Asthenia [Not Recovered/Not Resolved]
  - Therapy cessation [Unknown]
  - Abdominal discomfort [Not Recovered/Not Resolved]
  - Back pain [Not Recovered/Not Resolved]
  - Headache [Not Recovered/Not Resolved]
  - Abdominal pain upper [Unknown]

NARRATIVE: CASE EVENT DATE: 20170412
